FAERS Safety Report 7320718-0 (Version None)
Quarter: 2011Q1

REPORT INFORMATION
  Report Type: 
  Country: None (occurrence: None)
  Receive Date: 20110228
  Receipt Date: 20110221
  Transmission Date: 20110831
  Serious: Yes (Other)
  Sender: FDA-Public Use
  Company Number: BR-PFIZER INC-2011037378

PATIENT
  Age: 55 Year
  Sex: Female
  Weight: 57 kg

DRUGS (4)
  1. CRESTOR [Concomitant]
     Indication: BLOOD CHOLESTEROL
     Dosage: 20 MG,
     Dates: start: 20110219
  2. PAROXETINE [Concomitant]
     Indication: DEPRESSION
     Dosage: UNK
     Dates: start: 20040101
  3. CHAMPIX [Suspect]
     Indication: TOBACCO USER
     Dosage: UNK
     Route: 048
     Dates: start: 20110214
  4. DIAZEPAM [Concomitant]
     Indication: INSOMNIA
     Dosage: UNK

REACTIONS (1)
  - DEPRESSION [None]
